FAERS Safety Report 5330180-5 (Version None)
Quarter: 2007Q2

REPORT INFORMATION
  Report Type: 
  Country: None (occurrence: None)
  Receive Date: 20070521
  Receipt Date: 20070516
  Transmission Date: 20071010
  Serious: Yes (Hospitalization)
  Sender: FDA-Public Use
  Company Number: DE-BRISTOL-MYERS SQUIBB COMPANY-13767082

PATIENT
  Age: 67 Year
  Sex: Male

DRUGS (6)
  1. CETUXIMAB [Suspect]
     Indication: NON-SMALL CELL LUNG CANCER
     Route: 040
     Dates: start: 20070424, end: 20070424
  2. GEMCITABINE HCL [Suspect]
     Indication: NON-SMALL CELL LUNG CANCER
     Route: 042
     Dates: start: 20070416, end: 20070416
  3. ACETYLSALICYLIC ACID SRT [Concomitant]
     Indication: ARTERIAL DISORDER
     Dates: end: 20070429
  4. MOVICOL [Concomitant]
     Indication: CONSTIPATION
     Dates: end: 20070429
  5. LACTULOSE [Concomitant]
     Indication: CONSTIPATION
     Dates: start: 20070417
  6. RADIATION THERAPY [Concomitant]
     Indication: NON-SMALL CELL LUNG CANCER
     Dates: start: 20070410

REACTIONS (1)
  - COLITIS [None]
